FAERS Safety Report 9343794 (Version 2)
Quarter: 2013Q2

REPORT INFORMATION
  Report Type: Report from Study
  Country: KR (occurrence: KR)
  Receive Date: 20130612
  Receipt Date: 20130620
  Transmission Date: 20140414
  Serious: Yes (Hospitalization)
  Sender: FDA-Public Use
  Company Number: KR-JNJFOC-20130602501

PATIENT
  Age: 13 Year
  Sex: Male
  Weight: 34.1 kg

DRUGS (2)
  1. REMICADE [Suspect]
     Indication: CROHN^S DISEASE
     Dosage: ONCE
     Route: 042
     Dates: start: 20130320, end: 20130507
  2. DICAMAX [Concomitant]
     Indication: OSTEOPOROSIS
     Dosage: 1000 (UNITS UNSPECIFIED) 1 TAB ONCE
     Route: 048
     Dates: start: 20120529

REACTIONS (1)
  - Abdominal pain [Recovered/Resolved]
